FAERS Safety Report 10264189 (Version 1)
Quarter: 2014Q2

REPORT INFORMATION
  Report Type: Spontaneous
  Country: US (occurrence: None)
  Receive Date: 20140624
  Receipt Date: 20140624
  Transmission Date: 20141212
  Serious: Yes (Other)
  Sender: FDA-Public Use
  Company Number: 001758338A

PATIENT
  Age: 48 Year
  Sex: Female

DRUGS (4)
  1. MB* ANTIOXIDANT DAY CREME SPF 20 [Suspect]
     Dosage: ONCE DERMAL
     Dates: start: 20140507
  2. MB* SKIN BRIGHTENING DECOLLETE+NECK TREATMENT SPF 15 [Suspect]
     Dosage: ONCE DERMAL
     Dates: start: 20140507
  3. SYNTHROID [Concomitant]
  4. CHRONIC PAIN MANAGEMENT MEDICATIONS [Concomitant]

REACTIONS (3)
  - Hypersensitivity [None]
  - Urticaria [None]
  - Throat tightness [None]
